FAERS Safety Report 12877005 (Version 2)
Quarter: 2016Q4

REPORT INFORMATION
  Report Type: Spontaneous
  Country: US (occurrence: US)
  Receive Date: 20161024
  Receipt Date: 20161115
  Transmission Date: 20170207
  Serious: Yes (Other)
  Sender: FDA-Public Use
  Company Number: US-PFIZER INC-2016483161

PATIENT
  Age: 79 Year
  Sex: Female

DRUGS (4)
  1. LETROZOLE. [Suspect]
     Active Substance: LETROZOLE
     Dosage: UNK
  2. IBRANCE [Suspect]
     Active Substance: PALBOCICLIB
     Dosage: 100 MG, CYCLIC (1 C PO DAILY FOR 21 DAYS ON AND 7 DAYS OFF)
     Route: 048
     Dates: start: 20160316
  3. IBRANCE [Suspect]
     Active Substance: PALBOCICLIB
     Dosage: 100 MG, CYCLIC (1 CAPSULE(S) BY MOUTH EVERY DAY FOR 21 DAYS THEN TAKE 7 DAYS OFF AS DIRECTED)
     Route: 048
     Dates: start: 20161028
  4. IBRANCE [Suspect]
     Active Substance: PALBOCICLIB
     Dosage: 100 MG, CYCLIC (1 CAPSULE(S) BY MOUTH EVERY DAY FOR 21 DAYS THEN TAKE 7 DAYS OFF AS DIRECTED)
     Route: 048
     Dates: start: 20160818, end: 2016

REACTIONS (2)
  - Infected cyst [Unknown]
  - Abdominal discomfort [Unknown]
